FAERS Safety Report 6074634-5 (Version None)
Quarter: 2009Q1

REPORT INFORMATION
  Report Type: 
  Country: None (occurrence: None)
  Receive Date: 20090209
  Receipt Date: 20090209
  Transmission Date: 20090719
  Serious: No
  Sender: FDA-Public Use
  Company Number: None

PATIENT
  Age: 46 Year
  Sex: Female
  Weight: 106.5953 kg

DRUGS (1)
  1. KEPPRA XR [Suspect]
     Indication: CONVULSION
     Dosage: 1000MG TWICE PER DAY PO
     Route: 048
     Dates: start: 20081013, end: 20090206

REACTIONS (9)
  - BURNING SENSATION [None]
  - DRUG HYPERSENSITIVITY [None]
  - IMPETIGO [None]
  - INSOMNIA [None]
  - PRURITUS [None]
  - RASH [None]
  - SCRATCH [None]
  - SKIN HAEMORRHAGE [None]
  - SKIN ULCER [None]
